FAERS Safety Report 7739780-6 (Version None)
Quarter: 2011Q3

REPORT INFORMATION
  Report Type: 
  Country: None (occurrence: None)
  Receive Date: 20110909
  Receipt Date: 20110830
  Transmission Date: 20111222
  Serious: Yes (Other)
  Sender: FDA-Public Use
  Company Number: JP-JNJFOC-20100508961

PATIENT
  Sex: Female
  Weight: 37 kg

DRUGS (7)
  1. REMICADE [Suspect]
     Indication: RHEUMATOID ARTHRITIS
     Route: 042
     Dates: start: 20090710
  2. REMICADE [Suspect]
     Route: 042
     Dates: start: 20090911
  3. STEROIDS NOS [Concomitant]
     Indication: RHEUMATOID ARTHRITIS
     Route: 065
  4. REMICADE [Suspect]
     Route: 042
     Dates: start: 20091104
  5. REMICADE [Suspect]
     Route: 042
     Dates: start: 20090812
  6. RHEUMATREX [Concomitant]
     Indication: RHEUMATOID ARTHRITIS
     Route: 065
  7. NSAIDS [Concomitant]
     Indication: RHEUMATOID ARTHRITIS
     Route: 065

REACTIONS (3)
  - ANGINA PECTORIS [None]
  - INFUSION RELATED REACTION [None]
  - ECG SIGNS OF MYOCARDIAL ISCHAEMIA [None]
